FAERS Safety Report 8896261 (Version 1)
Quarter: 2012Q4

REPORT INFORMATION
  Report Type: Spontaneous
  Country: FR (occurrence: None)
  Receive Date: 20121031
  Receipt Date: 20121031
  Transmission Date: 20130627
  Serious: Yes (Hospitalization, Disabling)
  Sender: FDA-Public Use
  Company Number: 2012DEPFR00448

PATIENT
  Sex: Female
  Weight: 62 kg

DRUGS (5)
  1. DEPOCYTE (CYTARABINE) LIPOSOME INJECTABLE SUSPENSION, MG [Suspect]
     Indication: LYMPHOMATOUS MENINGITIS
     Route: 037
  2. LYTOS (CLODRONATE DISODIUM) [Concomitant]
  3. CORTANCYL (PREDNISONE) [Concomitant]
  4. NEBILOX (NEBIVOLOL HYDROCHLORIDE) [Concomitant]
  5. FEC50 (EPIRUBICIN; FLUOROURACIL; CYCLOPHOSPHAMIDE) [Concomitant]

REACTIONS (5)
  - Infection [None]
  - Cauda equina syndrome [None]
  - Polyneuropathy [None]
  - Headache [None]
  - Dizziness [None]
